FAERS Safety Report 4972538-X (Version None)
Quarter: 2006Q1

REPORT INFORMATION
  Report Type: 
  Country: None (occurrence: None)
  Receive Date: 20060216
  Receipt Date: 20051129
  Transmission Date: 20060701
  Serious: No
  Sender: FDA-Public Use
  Company Number: TPA2005A01294

PATIENT
  Age: 73 Year
  Sex: Female
  Weight: 102.0593 kg

DRUGS (9)
  1. ROZEREM [Suspect]
     Indication: INSOMNIA
     Dosage: 8 MG, QHS, PER ORAL
     Route: 048
     Dates: start: 20051019, end: 20051021
  2. OMEPRAZOLE [Concomitant]
  3. LIPITOR [Concomitant]
  4. XANAX [Concomitant]
  5. ANAFRANIL [Concomitant]
  6. TAZTIA (XT (DILTIAZEM) [Concomitant]
  7. GABAPENTIN [Concomitant]
  8. FOSAMAX [Concomitant]
  9. TYLENOL (CAPLET) [Concomitant]

REACTIONS (3)
  - DRUG INEFFECTIVE [None]
  - HYPOKINESIA [None]
  - MYALGIA [None]
